FAERS Safety Report 8428928-6 (Version None)
Quarter: 2012Q2

REPORT INFORMATION
  Report Type: 
  Country: None (occurrence: None)
  Receive Date: 20120612
  Receipt Date: 20120604
  Transmission Date: 20120825
  Serious: Yes (Other)
  Sender: FDA-Public Use
  Company Number: JP-ASTELLAS-2012JP001996

PATIENT
  Sex: Female
  Weight: 45 kg

DRUGS (5)
  1. PROGRAF [Suspect]
     Indication: PROPHYLAXIS AGAINST GRAFT VERSUS HOST DISEASE
     Dosage: 0.5 MG, BID
     Route: 048
     Dates: start: 20101123, end: 20110512
  2. DOGMATYL [Concomitant]
     Indication: DEPRESSION
     Dosage: 50 MG, UID/QD
     Route: 048
     Dates: start: 20110218
  3. PROGRAF [Suspect]
     Indication: IMMUNOSUPPRESSION
     Dosage: UNK
     Route: 048
  4. REFLEX                             /01293201/ [Concomitant]
     Indication: DEPRESSION
     Dosage: 7.5 MG, UID/QD
     Route: 048
     Dates: start: 20110303
  5. CORTICOSTEROID NOS [Concomitant]
     Route: 065

REACTIONS (4)
  - DRUG INEFFECTIVE [None]
  - ACUTE GRAFT VERSUS HOST DISEASE [None]
  - CHRONIC GRAFT VERSUS HOST DISEASE [None]
  - PNEUMONIA CYTOMEGALOVIRAL [None]
